FAERS Safety Report 8128127-1 (Version None)
Quarter: 2012Q2

REPORT INFORMATION
  Report Type: 
  Country: None (occurrence: None)
  Receive Date: 20120210
  Receipt Date: 20120209
  Transmission Date: 20120825
  Serious: Yes (Other)
  Sender: FDA-Public Use
  Company Number: US-JNJFOC-2010001550

PATIENT
  Age: 9 Year
  Sex: Male

DRUGS (3)
  1. ROLAIDS [Suspect]
     Indication: DYSPEPSIA
     Dosage: DAILY DOSE TEXT: UNSPECIFIED
     Route: 065
  2. CHILDREN'S TYLENOL SUSPENSION [Suspect]
     Indication: SINUS HEADACHE
     Dosage: DAILY DOSE TEXT: UNSPECIFIED MELTAWAYS
     Route: 048
  3. CHILDREN'S TYLENOL SUSPENSION [Suspect]
     Route: 048

REACTIONS (4)
  - PRODUCT QUALITY ISSUE [None]
  - PAIN [None]
  - GASTRIC DISORDER [None]
  - IMPAIRED WORK ABILITY [None]
